FAERS Safety Report 12762027 (Version 1)
Quarter: 2016Q3

REPORT INFORMATION
  Report Type: Spontaneous
  Country: US (occurrence: US)
  Receive Date: 20160920
  Receipt Date: 20160920
  Transmission Date: 20161109
  Serious: Yes (Hospitalization)
  Sender: FDA-Public Use
  Company Number: US-BAYER-2016-177131

PATIENT
  Age: 78 Year
  Sex: Male

DRUGS (2)
  1. BAYER GENUINE ASPIRIN [Suspect]
     Active Substance: ASPIRIN
     Dosage: UNK
  2. APIXABAN [Suspect]
     Active Substance: APIXABAN
     Dosage: 5 MG, BID

REACTIONS (4)
  - Labelled drug-drug interaction medication error [None]
  - Drug prescribing error [None]
  - Haematuria [Unknown]
  - Drug administration error [None]
